FAERS Safety Report 9280176 (Version 1)
Quarter: 2013Q2

REPORT INFORMATION
  Report Type: Spontaneous
  Country: SE (occurrence: SE)
  Receive Date: 20130509
  Receipt Date: 20130509
  Transmission Date: 20140414
  Serious: Yes (Life-Threatening, Hospitalization)
  Sender: FDA-Public Use
  Company Number: SE-JNJFOC-20130501553

PATIENT
  Age: 56 Year
  Sex: Male

DRUGS (4)
  1. REMICADE [Suspect]
     Indication: COLITIS ULCERATIVE
     Dosage: DOSE ALSO REPORTED AS 410 MG
     Route: 042
     Dates: start: 20111206, end: 20111206
  2. FERINJECT [Concomitant]
     Route: 065
  3. ASACOL [Concomitant]
     Route: 065
  4. BETAPRED [Concomitant]
     Route: 050

REACTIONS (1)
  - Cerebral infarction [Recovered/Resolved with Sequelae]
